APPROVED DRUG PRODUCT: SLO-PHYLLIN
Active Ingredient: THEOPHYLLINE
Strength: 200MG
Dosage Form/Route: TABLET;ORAL
Application: A085204 | Product #001
Applicant: SANOFI AVENTIS US LLC
Approved: Approved Prior to Jan 1, 1982 | RLD: No | RS: No | Type: DISCN